FAERS Safety Report 18440594 (Version 1)
Quarter: 2020Q4

REPORT INFORMATION
  Report Type: Spontaneous
  Country: FR (occurrence: FR)
  Receive Date: 20201029
  Receipt Date: 20201029
  Transmission Date: 20210114
  Serious: Yes (Life-Threatening)
  Sender: FDA-Public Use
  Company Number: FR-TEVA-2020-FR-1841682

PATIENT
  Age: 83 Year
  Sex: Female
  Weight: 56 kg

DRUGS (12)
  1. PARACETAMOL [Concomitant]
     Active Substance: ACETAMINOPHEN
  2. SEROPLEX 5 MG, COMPRIME PELLICULE [Concomitant]
     Active Substance: ESCITALOPRAM OXALATE
  3. OMEPRAZOLE. [Concomitant]
     Active Substance: OMEPRAZOLE
  4. COAPROVEL 300 MG/25 MG, COMPRIME PELLICULE [Concomitant]
     Active Substance: HYDROCHLOROTHIAZIDE\IRBESARTAN
  5. XANAX [Concomitant]
     Active Substance: ALPRAZOLAM
  6. ALLOPURINOL. [Suspect]
     Active Substance: ALLOPURINOL
     Indication: HYPERURICAEMIA
     Dosage: UNIT DOSE  : 100 MG
     Route: 048
     Dates: start: 20200721, end: 20200828
  7. TEMERIT 5 MG, COMPRIME QUADRISECABLE [Concomitant]
     Active Substance: NEBIVOLOL HYDROCHLORIDE
  8. ASPEGIC [Concomitant]
  9. LOXEN L P 50 MG, GELULE A LIBERATION PROLONGEE [Concomitant]
     Active Substance: NICARDIPINE HYDROCHLORIDE
  10. CRESTOR [Concomitant]
     Active Substance: ROSUVASTATIN CALCIUM
  11. VOGALENE [Concomitant]
     Active Substance: METOPIMAZINE
  12. KETOPROFENE [Concomitant]
     Active Substance: KETOPROFEN

REACTIONS (2)
  - Toxic epidermal necrolysis [Recovering/Resolving]
  - Drug reaction with eosinophilia and systemic symptoms [Recovering/Resolving]

NARRATIVE: CASE EVENT DATE: 20200825
